FAERS Safety Report 5383964-1 (Version None)
Quarter: 2007Q3

REPORT INFORMATION
  Report Type: 
  Country: None (occurrence: None)
  Receive Date: 20070711
  Receipt Date: 20070703
  Transmission Date: 20080115
  Serious: Yes (Life-Threatening)
  Sender: FDA-Public Use
  Company Number: IT-ROCHE-505320

PATIENT
  Age: 55 Year
  Sex: Male

DRUGS (3)
  1. TICLID [Suspect]
     Route: 048
     Dates: start: 20070201, end: 20070329
  2. CARVEDILOL [Concomitant]
     Route: 048
  3. CARDIRENE [Concomitant]
     Route: 048

REACTIONS (3)
  - AGRANULOCYTOSIS [None]
  - LEUKOPENIA [None]
  - LUNG INFECTION PSEUDOMONAL [None]
